FAERS Safety Report 8857493 (Version 2)
Quarter: 2013Q1

REPORT INFORMATION
  Report Type: Other
  Country: DK (occurrence: FR)
  Receive Date: 20121024
  Receipt Date: 20130318
  Transmission Date: 20140127
  Serious: Yes (Hospitalization)
  Sender: FDA-Public Use
  Company Number: FR-FRI-1000023112

PATIENT
  Age: 54 Year
  Sex: Female

DRUGS (4)
  1. CITALOPRAM [Suspect]
     Indication: MAJOR DEPRESSION
     Dosage: 20 MG
     Route: 048
  2. CITALOPRAM [Suspect]
     Route: 048
  3. ALCOHOL [Suspect]
  4. ZOPLICONE [Concomitant]
     Indication: MAJOR DEPRESSION
     Dosage: 7.5 MG

REACTIONS (12)
  - Electrocardiogram QT prolonged [Recovered/Resolved]
  - Ventricular fibrillation [Recovered/Resolved]
  - Coma [Recovered/Resolved]
  - Ventricular tachycardia [Recovered/Resolved]
  - Bundle branch block left [Recovered/Resolved]
  - Altered state of consciousness [Recovered/Resolved]
  - Convulsion [Recovered/Resolved]
  - Metabolic acidosis [Recovered/Resolved]
  - Hypokalaemia [Recovered/Resolved]
  - Hyperlactacidaemia [Recovered/Resolved]
  - Drug interaction [Recovered/Resolved]
  - Intentional overdose [Recovered/Resolved]
